FAERS Safety Report 5526479-X (Version None)
Quarter: 2007Q4

REPORT INFORMATION
  Report Type: 
  Country: None (occurrence: None)
  Receive Date: 20071121
  Receipt Date: 20071121
  Transmission Date: 20080405
  Serious: Yes (Other)
  Sender: FDA-Public Use
  Company Number: None

PATIENT
  Age: 21 Year
  Sex: Female
  Weight: 54 kg

DRUGS (1)
  1. AZITHROMYCIN [Suspect]
     Indication: ACNE
     Dosage: 500MG  3 DAYS A WEEK   PO
     Route: 048

REACTIONS (4)
  - ERYTHEMA [None]
  - PRURITUS GENERALISED [None]
  - SKIN SWELLING [None]
  - WOUND INFECTION [None]
